FAERS Safety Report 4717418-X (Version None)
Quarter: 2005Q3

REPORT INFORMATION
  Report Type: 
  Country: None (occurrence: None)
  Receive Date: 20050719
  Receipt Date: 20050711
  Transmission Date: 20060218
  Serious: Yes (Other)
  Sender: FDA-Public Use
  Company Number: ES-MERCK-0507ESP00016

PATIENT
  Age: 61 Year
  Sex: Male

DRUGS (9)
  1. ZETIA [Suspect]
     Indication: PROPHYLAXIS
     Route: 048
     Dates: start: 20040811, end: 20050416
  2. GEMFIBROZIL [Concomitant]
     Route: 048
     Dates: start: 20040801
  3. CYCLOSPORINE [Concomitant]
     Indication: HEART TRANSPLANT
     Route: 065
  4. FUROSEMIDE [Concomitant]
     Route: 065
  5. GLIMEPIRIDE [Concomitant]
     Route: 065
  6. GLYBURIDE [Concomitant]
     Route: 065
  7. COLCHICINE [Concomitant]
     Route: 065
  8. ENALAPRIL MALEATE AND HYDROCHLOROTHIAZIDE [Concomitant]
     Route: 065
  9. METOPROLOL SUCCINATE [Concomitant]
     Route: 065

REACTIONS (5)
  - BLOOD CREATINE PHOSPHOKINASE INCREASED [None]
  - BLOOD CREATININE INCREASED [None]
  - MYALGIA [None]
  - MYOPATHY [None]
  - RHABDOMYOLYSIS [None]
